FAERS Safety Report 9270467 (Version 2)
Quarter: 2013Q2

REPORT INFORMATION
  Report Type: Spontaneous
  Country: US (occurrence: US)
  Receive Date: 20130503
  Receipt Date: 20130610
  Transmission Date: 20140414
  Serious: Yes (Death, Other)
  Sender: FDA-Public Use
  Company Number: US-PFIZER INC-2013135601

PATIENT
  Age: 70 Year
  Sex: Male

DRUGS (4)
  1. GLUCOTROL XL [Suspect]
     Indication: DIABETES MELLITUS
     Dosage: UNK
  2. DIOVAN (VALSARTAN) [Concomitant]
     Dosage: UNK
  3. JANUVIA [Concomitant]
     Dosage: UNK
  4. VYTORIN [Concomitant]
     Dosage: UNK

REACTIONS (4)
  - Cardiac disorder [Fatal]
  - Chronic obstructive pulmonary disease [Fatal]
  - Renal impairment [Unknown]
  - Drug ineffective [Unknown]
